FAERS Safety Report 10787905 (Version 1)
Quarter: 2015Q1

REPORT INFORMATION
  Report Type: Report from Study
  Country: US (occurrence: US)
  Receive Date: 20150212
  Receipt Date: 20150212
  Transmission Date: 20150721
  Serious: Yes (Death)
  Sender: FDA-Public Use
  Company Number: US-ROCHE-1537319

PATIENT

DRUGS (6)
  1. RITUXIMAB [Suspect]
     Active Substance: RITUXIMAB
     Indication: LEUKAEMIA
  2. CLADRIBINE. [Suspect]
     Active Substance: CLADRIBINE
     Indication: MANTLE CELL LYMPHOMA
     Dosage: DAY 1 TO 5
     Route: 042
  3. RITUXIMAB [Suspect]
     Active Substance: RITUXIMAB
     Indication: MANTLE CELL LYMPHOMA
     Route: 042
  4. CLADRIBINE. [Suspect]
     Active Substance: CLADRIBINE
     Indication: LEUKAEMIA
  5. VORINOSTAT [Suspect]
     Active Substance: VORINOSTAT
     Indication: MANTLE CELL LYMPHOMA
     Dosage: DAY 1 TO 14
     Route: 048
  6. VORINOSTAT [Suspect]
     Active Substance: VORINOSTAT
     Indication: LEUKAEMIA

REACTIONS (1)
  - Pulmonary haemorrhage [Fatal]
